FAERS Safety Report 4967422-1 (Version None)
Quarter: 2006Q2

REPORT INFORMATION
  Report Type: 
  Country: None (occurrence: None)
  Receive Date: 20060410
  Receipt Date: 20060207
  Transmission Date: 20061013
  Serious: Yes (Hospitalization)
  Sender: FDA-Public Use
  Company Number: FR-AMGEN-UK168003

PATIENT
  Age: 72 Year
  Sex: Female

DRUGS (3)
  1. NEUPOGEN [Suspect]
     Indication: PRE-EXISTING DISEASE
     Route: 042
     Dates: start: 20030315, end: 20040607
  2. ROFERON-A [Suspect]
     Route: 030
     Dates: start: 20021115, end: 20051205
  3. SORIATANE [Concomitant]
     Route: 048
     Dates: start: 20030615, end: 20051128

REACTIONS (6)
  - CARDIAC FAILURE [None]
  - COUGH [None]
  - DYSPNOEA [None]
  - INTERSTITIAL LUNG DISEASE [None]
  - LEUKOCYTOSIS [None]
  - MITRAL VALVE DISEASE [None]
